FAERS Safety Report 4507149-3 (Version None)
Quarter: 2005Q1

REPORT INFORMATION
  Report Type: 
  Country: None (occurrence: None)
  Receive Date: 20041025
  Receipt Date: 20040823
  Transmission Date: 20050727
  Serious: Yes (Other)
  Sender: FDA-Public Use
  Company Number: US-JNJFOC-20040505032

PATIENT
  Age: 84 Year
  Sex: Female

DRUGS (12)
  1. INFLIXIMAB (INFLIXIMAB, RECOMBINANT) LYOPHILIZED POWDER [Suspect]
     Indication: RHEUMATOID ARTHRITIS
     Dosage: , 1 IN  8 WEEK, INTRAVENOUS
     Route: 042
     Dates: start: 20000921
  2. DITROPAN (OXYBURYNIN) [Concomitant]
  3. ESTROGEN (ESTROGEN NOS) [Concomitant]
  4. FOLIC ACID [Concomitant]
  5. HYDROCHLOROTHIAZIDE [Concomitant]
  6. INSULIN [Concomitant]
  7. METHOTREXATE [Concomitant]
  8. OSCAL (CALCIUM CARBONATE) [Concomitant]
  9. POTASSIUM (POTASSIUM) [Concomitant]
  10. PROVERA [Concomitant]
  11. SYNTHROID [Concomitant]
  12. VITAMIN C (ASCORBIC ACID) [Concomitant]

REACTIONS (2)
  - ACTINIC KERATOSIS [None]
  - SQUAMOUS CELL CARCINOMA OF SKIN [None]
